FAERS Safety Report 8258425-2 (Version None)
Quarter: 2012Q2

REPORT INFORMATION
  Report Type: 
  Country: None (occurrence: None)
  Receive Date: 20120403
  Receipt Date: 20120403
  Transmission Date: 20120825
  Serious: No
  Sender: FDA-Public Use
  Company Number: None

PATIENT
  Age: 66 Year
  Sex: Female
  Weight: 77.2929 kg

DRUGS (2)
  1. TRIAMTERENE AND HYDROCHLOROTHIAZIDE [Suspect]
     Indication: PULMONARY HYPERTENSION
     Dosage: STARTED 2/27
  2. TRIAMTERENE AND HYDROCHLOROTHIAZIDE [Suspect]
     Indication: SCLERODERMA
     Dosage: STARTED 2/27

REACTIONS (1)
  - RASH [None]
